FAERS Safety Report 4838016-3 (Version None)
Quarter: 2005Q4

REPORT INFORMATION
  Report Type: 
  Country: None (occurrence: None)
  Receive Date: 20051123
  Receipt Date: 20051110
  Transmission Date: 20060501
  Serious: Yes (Other)
  Sender: FDA-Public Use
  Company Number: 2005154853

PATIENT
  Age: 66 Year
  Sex: Male

DRUGS (1)
  1. VIAGRA [Suspect]
     Indication: ILL-DEFINED DISORDER
     Dosage: 50 MG, AS NECESSARY, ORAL
     Route: 048

REACTIONS (3)
  - DRUG INEFFECTIVE [None]
  - MACULAR DEGENERATION [None]
  - PHOTOPHOBIA [None]
